FAERS Safety Report 10176413 (Version 1)
Quarter: 2014Q2

REPORT INFORMATION
  Report Type: Spontaneous
  Country: US (occurrence: None)
  Receive Date: 20140515
  Receipt Date: 20140515
  Transmission Date: 20141212
  Serious: No
  Sender: FDA-Public Use
  Company Number: None

PATIENT
  Sex: Male
  Weight: 97.52 kg

DRUGS (7)
  1. OXYCODONE HCL [Suspect]
     Indication: ARTHRITIS
     Route: 048
     Dates: start: 20140402
  2. OXYCODONE HCL [Suspect]
     Indication: ABDOMINAL PAIN
     Route: 048
     Dates: start: 20140402
  3. OXYCODONE HCL [Suspect]
     Indication: JOINT DISLOCATION
     Route: 048
     Dates: start: 20140402
  4. OXYCODONE HCL [Suspect]
     Indication: JOINT DISLOCATION
     Route: 048
     Dates: start: 20140402
  5. MS CONTIN [Concomitant]
  6. OXYCODONE [Concomitant]
  7. DIAZEPAM [Concomitant]

REACTIONS (4)
  - Drug ineffective [None]
  - Product substitution issue [None]
  - Product quality issue [None]
  - Incorrect dose administered [None]
